FAERS Safety Report 10903208 (Version 1)
Quarter: 2015Q1

REPORT INFORMATION
  Report Type: Spontaneous
  Country: US (occurrence: US)
  Receive Date: 20150311
  Receipt Date: 20150311
  Transmission Date: 20150721
  Serious: No
  Sender: FDA-Public Use
  Company Number: US-TEVA-528255USA

PATIENT
  Sex: Female

DRUGS (1)
  1. TEMOZOLOMIDE. [Suspect]
     Active Substance: TEMOZOLOMIDE
     Dosage: 100 MILLIGRAM DAILY;
     Route: 048

REACTIONS (4)
  - Oral mucosal blistering [Unknown]
  - Cough [Unknown]
  - Anxiety [Unknown]
  - Rash [Unknown]
